FAERS Safety Report 9020668 (Version 1)
Quarter: 2013Q1

REPORT INFORMATION
  Report Type: Spontaneous
  Country: US (occurrence: US)
  Receive Date: 20130119
  Receipt Date: 20130119
  Transmission Date: 20140127
  Serious: No
  Sender: FDA-Public Use
  Company Number: US-ALLERGAN-1206459US

PATIENT
  Sex: Female

DRUGS (5)
  1. BOTOX COSMETIC [Suspect]
     Indication: SKIN WRINKLING
     Dosage: UNK
     Route: 030
     Dates: start: 2008, end: 2008
  2. BOTOX COSMETIC [Suspect]
     Dosage: 35 UNITS, SINGLE
     Route: 030
     Dates: start: 201111, end: 201111
  3. BOTOX COSMETIC [Suspect]
     Dosage: UNK
     Route: 030
     Dates: start: 20120416, end: 20120416
  4. BOTOX COSMETIC [Suspect]
     Dosage: UNK
     Route: 030
     Dates: start: 20120430, end: 20120430
  5. LATISSE 0.03% [Concomitant]
     Indication: PRODUCT USED FOR UNKNOWN INDICATION
     Dosage: 2 GTT, QHS
     Route: 061
     Dates: start: 2009

REACTIONS (7)
  - Blister [Recovered/Resolved]
  - Injection site swelling [Recovering/Resolving]
  - Drug ineffective [Unknown]
  - Facial paresis [Recovering/Resolving]
  - Facial paresis [Recovered/Resolved]
  - Facial paresis [Recovering/Resolving]
  - Facial paresis [Recovering/Resolving]
